FAERS Safety Report 10530092 (Version 1)
Quarter: 2014Q4

REPORT INFORMATION
  Report Type: Spontaneous
  Country: US (occurrence: None)
  Receive Date: 20141020
  Receipt Date: 20141020
  Transmission Date: 20150528
  Serious: Yes (Life-Threatening, Other)
  Sender: FDA-Public Use
  Company Number: None

PATIENT
  Age: 64 Year
  Sex: Female
  Weight: 88.45 kg

DRUGS (3)
  1. LEVOTHYROXINE [Concomitant]
     Active Substance: LEVOTHYROXINE
  2. ATENOLOL. [Suspect]
     Active Substance: ATENOLOL
     Indication: PALPITATIONS
     Dosage: 1 PILL
     Route: 048
     Dates: start: 20140401, end: 20141015
  3. ATENOLOL. [Suspect]
     Active Substance: ATENOLOL
     Indication: MIGRAINE
     Dosage: 1 PILL
     Route: 048
     Dates: start: 20140401, end: 20141015

REACTIONS (6)
  - Fatigue [None]
  - Product substitution issue [None]
  - Product quality issue [None]
  - Muscle spasms [None]
  - Bradycardia [None]
  - Hypotension [None]

NARRATIVE: CASE EVENT DATE: 20141015
